FAERS Safety Report 12603414 (Version 1)
Quarter: 2016Q3

REPORT INFORMATION
  Report Type: Report from Study
  Country: US (occurrence: US)
  Receive Date: 20160728
  Receipt Date: 20160728
  Transmission Date: 20161109
  Serious: Yes (Other)
  Sender: FDA-Public Use
  Company Number: US-ABBVIE-16P-163-1686340-00

PATIENT
  Sex: Female

DRUGS (1)
  1. SYNTHROID [Suspect]
     Active Substance: LEVOTHYROXINE SODIUM
     Indication: PRODUCT USED FOR UNKNOWN INDICATION
     Route: 048

REACTIONS (15)
  - Post-traumatic stress disorder [Unknown]
  - Borderline personality disorder [Unknown]
  - Bursitis [Unknown]
  - Hypothyroidism [Unknown]
  - Neuropathy peripheral [Unknown]
  - Major depression [Unknown]
  - Concussion [Unknown]
  - Anxiety [Unknown]
  - Pancreatitis chronic [Unknown]
  - Chronic kidney disease [Unknown]
  - Oedema [Unknown]
  - Craniocerebral injury [Unknown]
  - Hepatic steatosis [Unknown]
  - Arthritis [Unknown]
  - Hypertension [Unknown]
